FAERS Safety Report 10301359 (Version 5)
Quarter: 2014Q3

REPORT INFORMATION
  Report Type: Spontaneous
  Country: GB (occurrence: None)
  Receive Date: 20140708
  Receipt Date: 20140904
  Transmission Date: 20150326
  Serious: Yes (Death, Life-Threatening, Hospitalization)
  Sender: FDA-Public Use
  Company Number: 2423900

PATIENT
  Age: 76 Year
  Sex: Female
  Weight: 65.57 kg

DRUGS (17)
  1. ATENOLOL. [Concomitant]
     Active Substance: ATENOLOL
  2. ITRACONAZOLE. [Concomitant]
     Active Substance: ITRACONAZOLE
  3. SIMVASTATIN. [Concomitant]
     Active Substance: SIMVASTATIN
  4. RITUXIMAB [Suspect]
     Active Substance: RITUXIMAB
     Indication: DIFFUSE LARGE B-CELL LYMPHOMA
     Dosage: 645 MG MILLIGRAM(S), UNKNOWN, INTRAVENOUS (NOT OTHERWISE SPECIFIED)?
     Route: 042
     Dates: start: 20090826
  5. CYCLOPHOSPHAMIDE. [Suspect]
     Active Substance: CYCLOPHOSPHAMIDE
     Indication: DIFFUSE LARGE B-CELL LYMPHOMA
     Dosage: 1300 MG MILLIGRAM(S), UNKNOWN, INTRAVENOUS (NOT OTHERWISE SPECIFICED)?
     Route: 042
     Dates: start: 20090826
  6. ALLOPURINOL. [Concomitant]
     Active Substance: ALLOPURINOL
  7. ACICLOVIR [Concomitant]
     Active Substance: ACYCLOVIR
  8. FUROSEMIDE. [Concomitant]
     Active Substance: FUROSEMIDE
  9. VANCOMYCIN [Concomitant]
     Active Substance: VANCOMYCIN
  10. FENTANYL. [Concomitant]
     Active Substance: FENTANYL
  11. VINCRISTINE SULFATE. [Suspect]
     Active Substance: VINCRISTINE SULFATE
     Indication: DIFFUSE LARGE B-CELL LYMPHOMA
     Dosage: UNK, UNKNOWN, INTRAVENOUS, (NOT OTHERWISE SPECIFIED)?
     Route: 042
     Dates: start: 20090826
  12. GEMCITABINE HYDROCHLORIDE. [Suspect]
     Active Substance: GEMCITABINE HYDROCHLORIDE
     Indication: DIFFUSE LARGE B-CELL LYMPHOMA
     Dosage: 1285 MG MILLIGRAM(S), UNKNOWN, INTRAVENOUS (NOT OTHERWISE SPECIFIED)?
     Route: 042
     Dates: start: 20090826
  13. CALCIUM CARBONATE W/COLECALCIFEROL) [Concomitant]
  14. DALTEPARIN SODIUM [Concomitant]
     Active Substance: DALTEPARIN SODIUM
  15. POTASSIUM CHLORIDE. [Concomitant]
     Active Substance: POTASSIUM CHLORIDE
  16. PEGFILGRASTIM [Suspect]
     Active Substance: PEGFILGRASTIM
     Indication: DIFFUSE LARGE B-CELL LYMPHOMA
     Dosage: 6 MG MILLIGRAM(S), UNKNOWN, SUBCUTANEOUS
     Route: 058
     Dates: start: 20090903
  17. OMEPRAZOLE. [Concomitant]
     Active Substance: OMEPRAZOLE

REACTIONS (8)
  - Atrial fibrillation [None]
  - Cardiotoxicity [None]
  - Pleural effusion [None]
  - Oedema [None]
  - Neutropenia [None]
  - Leukopenia [None]
  - Oedema peripheral [None]
  - Cardiac failure [None]

NARRATIVE: CASE EVENT DATE: 20090901
